FAERS Safety Report 5038939-9 (Version None)
Quarter: 2006Q2

REPORT INFORMATION
  Report Type: 
  Country: None (occurrence: None)
  Receive Date: 20060626
  Receipt Date: 20060626
  Transmission Date: 20061013
  Serious: Yes (Other)
  Sender: FDA-Public Use
  Company Number: None

PATIENT
  Age: 27 Year
  Sex: Female
  Weight: 71.6683 kg

DRUGS (2)
  1. AMPICILLIN [Suspect]
     Indication: URINARY TRACT INFECTION
     Dosage: 2 GM DAILY IV
     Route: 042
     Dates: start: 20060426, end: 20060426
  2. AMPICILLIN [Suspect]
     Indication: VOMITING
     Dosage: 2 GM DAILY IV
     Route: 042
     Dates: start: 20060426, end: 20060426

REACTIONS (1)
  - PHLEBITIS [None]
